FAERS Safety Report 20823764 (Version 1)
Quarter: 2022Q2

REPORT INFORMATION
  Report Type: Other
  Country: US (occurrence: None)
  Receive Date: 20220513
  Receipt Date: 20220513
  Transmission Date: 20220721
  Serious: Yes (Other)
  Sender: FDA-Public Use
  Company Number: US-ROCHE-3091630

PATIENT
  Age: 57 Year
  Weight: 136.6 kg

DRUGS (19)
  1. CAPECITABINE [Suspect]
     Active Substance: CAPECITABINE
     Indication: Colorectal cancer metastatic
     Dosage: ON 19/MAR/2018, DAY 1-14, (EACH 21 DAY CYCLE)
     Route: 048
     Dates: start: 20171201
  2. BEVACIZUMAB [Suspect]
     Active Substance: BEVACIZUMAB
     Indication: Colorectal cancer metastatic
     Dosage: DAY 1 OF EACH CYCLE (21 DAYS)
     Route: 042
     Dates: start: 20171201
  3. ATEZOLIZUMAB [Suspect]
     Active Substance: ATEZOLIZUMAB
     Indication: Colorectal cancer metastatic
     Dosage: DAY 1 OF EACH CYCLE (21 DAYS)
     Route: 042
     Dates: start: 20171201
  4. OXYBUTYNIN [Concomitant]
     Active Substance: OXYBUTYNIN
  5. AMLODIPINE [Concomitant]
     Active Substance: AMLODIPINE BESYLATE
  6. TRIAMTERENE [Concomitant]
     Active Substance: TRIAMTERENE
  7. POTASSIUM ACETATE [Concomitant]
     Active Substance: POTASSIUM ACETATE
  8. NORCO [Concomitant]
     Active Substance: ACETAMINOPHEN\HYDROCODONE BITARTRATE
  9. IBUPROFEN [Concomitant]
     Active Substance: IBUPROFEN
  10. COMPAZINE [Concomitant]
     Active Substance: PROCHLORPERAZINE MALEATE
  11. RIVAROXABAN [Concomitant]
     Active Substance: RIVAROXABAN
  12. LOVENOX [Concomitant]
     Active Substance: ENOXAPARIN SODIUM
  13. LOMOTIL [Concomitant]
     Active Substance: ATROPINE SULFATE\DIPHENOXYLATE HYDROCHLORIDE
  14. ACYCLOVIR [Concomitant]
     Active Substance: ACYCLOVIR
  15. CIPRO [Concomitant]
     Active Substance: CIPROFLOXACIN HYDROCHLORIDE
  16. LORATADINE [Concomitant]
     Active Substance: LORATADINE
  17. BACTRIM [Concomitant]
     Active Substance: SULFAMETHOXAZOLE\TRIMETHOPRIM
  18. BENADRYL [Concomitant]
     Active Substance: DIPHENHYDRAMINE HYDROCHLORIDE
  19. NYSTATIN [Concomitant]
     Active Substance: NYSTATIN

REACTIONS (1)
  - Embolism [Recovered/Resolved]

NARRATIVE: CASE EVENT DATE: 20180331
